FAERS Safety Report 8056736-7 (Version None)
Quarter: 2012Q1

REPORT INFORMATION
  Report Type: 
  Country: None (occurrence: None)
  Receive Date: 20120119
  Receipt Date: 20120111
  Transmission Date: 20120608
  Serious: Yes (Hospitalization)
  Sender: FDA-Public Use
  Company Number: SK-JNJFOC-20110813060

PATIENT
  Sex: Female
  Weight: 62 kg

DRUGS (9)
  1. USTEKINUMAB [Suspect]
     Route: 058
     Dates: start: 20110401
  2. USTEKINUMAB [Suspect]
     Indication: PSORIASIS
     Route: 058
     Dates: start: 20110516, end: 20110516
  3. FLUVOXAMINE MALEATE [Concomitant]
  4. ZODAC [Concomitant]
  5. NOVALGIN [Concomitant]
  6. HALOPERIDOL [Concomitant]
  7. PROTHAZIN [Concomitant]
  8. ECOBEC [Concomitant]
  9. ZOPICLONE [Concomitant]

REACTIONS (2)
  - GRAND MAL CONVULSION [None]
  - HEAT EXHAUSTION [None]
